FAERS Safety Report 17029608 (Version 2)
Quarter: 2019Q4

REPORT INFORMATION
  Report Type: Spontaneous
  Country: JP (occurrence: JP)
  Receive Date: 20191114
  Receipt Date: 20191218
  Transmission Date: 20200122
  Serious: Yes (Hospitalization, Other)
  Sender: FDA-Public Use
  Company Number: JP-GLAXOSMITHKLINE-JP2019JPN202796

PATIENT
  Age: 52 Year
  Sex: Female

DRUGS (2)
  1. RELVAR ELLIPTA [Suspect]
     Active Substance: FLUTICASONE FUROATE\VILANTEROL TRIFENATATE
     Indication: INTERSTITIAL LUNG DISEASE
     Dosage: 200 ?G, UNK
     Route: 055
  2. RELVAR ELLIPTA [Suspect]
     Active Substance: FLUTICASONE FUROATE\VILANTEROL TRIFENATATE
     Indication: COUGH

REACTIONS (8)
  - Ill-defined disorder [Unknown]
  - Lymphadenopathy [Not Recovered/Not Resolved]
  - Pyrexia [Not Recovered/Not Resolved]
  - Treatment noncompliance [Unknown]
  - Wrong technique in product usage process [Unknown]
  - Amnesia [Not Recovered/Not Resolved]
  - Product use in unapproved indication [Unknown]
  - Coma [Unknown]

NARRATIVE: CASE EVENT DATE: 2019
